FAERS Safety Report 13944041 (Version 1)
Quarter: 2017Q3

REPORT INFORMATION
  Report Type: Spontaneous
  Country: US (occurrence: US)
  Receive Date: 20170907
  Receipt Date: 20170907
  Transmission Date: 20171128
  Serious: Yes (Other)
  Sender: FDA-Public Use
  Company Number: US-ROCHE-1437606

PATIENT
  Age: 38 Year
  Sex: Female
  Weight: 52.66 kg

DRUGS (5)
  1. RITUXAN [Suspect]
     Active Substance: RITUXIMAB
     Indication: NON-HODGKIN^S LYMPHOMA
     Route: 065
     Dates: start: 2013
  2. BENDAMUSTINE [Suspect]
     Active Substance: BENDAMUSTINE
     Indication: NON-HODGKIN^S LYMPHOMA
     Route: 065
  3. C1 ESTERASE INHIBITOR (UNK INGREDIENTS) [Suspect]
     Active Substance: C1 ESTERASE INHIBITOR (HUMAN)
     Indication: HEREDITARY ANGIOEDEMA
     Dosage: 500 UNITS
     Route: 042
     Dates: start: 2012
  4. ICATIBANT [Concomitant]
     Active Substance: ICATIBANT ACETATE
  5. C1 ESTERASE INHIBITOR (UNK INGREDIENTS) [Suspect]
     Active Substance: C1 ESTERASE INHIBITOR (HUMAN)
     Dosage: 1000 UNITS
     Route: 042

REACTIONS (6)
  - Ear pain [Unknown]
  - Hereditary angioedema [Not Recovered/Not Resolved]
  - Inappropriate schedule of drug administration [Unknown]
  - Chronic sinusitis [Not Recovered/Not Resolved]
  - B-cell lymphoma recurrent [Not Recovered/Not Resolved]
  - Neck pain [Unknown]

NARRATIVE: CASE EVENT DATE: 2012
